FAERS Safety Report 4784395-5 (Version None)
Quarter: 2005Q3

REPORT INFORMATION
  Report Type: 
  Country: None (occurrence: None)
  Receive Date: 20050930
  Receipt Date: 20050207
  Transmission Date: 20060218
  Serious: Yes (Hospitalization, Other)
  Sender: FDA-Public Use
  Company Number: DE-ABBOTT-05P-062-0290071-00

PATIENT
  Age: 63 Year
  Sex: Female

DRUGS (4)
  1. HUMIRA [Suspect]
     Indication: DRUG USE FOR UNKNOWN INDICATION
     Dates: start: 20040101
  2. METHOTREXATE [Concomitant]
     Indication: DRUG USE FOR UNKNOWN INDICATION
     Dates: start: 20040101
  3. METHOTREXATE [Concomitant]
     Dates: start: 20040720
  4. METHOTREXATE [Concomitant]
     Dates: start: 20050208

REACTIONS (3)
  - GLAUCOMA [None]
  - JOINT STIFFNESS [None]
  - WRIST SURGERY [None]
